FAERS Safety Report 4476820-4 (Version None)
Quarter: 2004Q4

REPORT INFORMATION
  Report Type: 
  Country: None (occurrence: None)
  Receive Date: 20041013
  Receipt Date: 20041001
  Transmission Date: 20050328
  Serious: Yes (Death, Hospitalization)
  Sender: FDA-Public Use
  Company Number: 2004-BP-08978BP

PATIENT
  Age: 83 Year
  Sex: Female

DRUGS (1)
  1. MOBIC [Suspect]
     Indication: OSTEOARTHRITIS
     Dosage: 15 MG (15 MG), PO
     Route: 048
     Dates: start: 20040701, end: 20040702

REACTIONS (2)
  - GASTROINTESTINAL HAEMORRHAGE [None]
  - SYNCOPE [None]
